FAERS Safety Report 17665733 (Version 2)
Quarter: 2020Q2

REPORT INFORMATION
  Report Type: Spontaneous
  Country: US (occurrence: US)
  Receive Date: 20200414
  Receipt Date: 20200519
  Transmission Date: 20200713
  Serious: Yes (Other)
  Sender: FDA-Public Use
  Company Number: US-ASTRAZENECA-2020SE44226

PATIENT
  Age: 428 Month
  Sex: Male
  Weight: 165.6 kg

DRUGS (9)
  1. GLIPIZIDE. [Concomitant]
     Active Substance: GLIPIZIDE
  2. PREDNISONE. [Concomitant]
     Active Substance: PREDNISONE
  3. SYMBICORT [Suspect]
     Active Substance: BUDESONIDE\FORMOTEROL FUMARATE DIHYDRATE
     Indication: ASTHMA
     Dosage: 160/4.5, TWO PUFFS TWO TIMES A DAY
     Route: 055
     Dates: start: 202001
  4. GABAPENTIN. [Concomitant]
     Active Substance: GABAPENTIN
  5. ZYRTEC TESSALON PERLES [Concomitant]
  6. SYMBICORT [Suspect]
     Active Substance: BUDESONIDE\FORMOTEROL FUMARATE DIHYDRATE
     Indication: ASTHMA
     Dosage: 160/4.5, TWO PUFFS TWO TIMES A DAY
     Route: 055
     Dates: start: 201912
  7. LOSARTAN. [Concomitant]
     Active Substance: LOSARTAN
  8. ALBUTEROL. [Concomitant]
     Active Substance: ALBUTEROL
  9. SINGULAIR [Concomitant]
     Active Substance: MONTELUKAST SODIUM

REACTIONS (14)
  - Body temperature fluctuation [Unknown]
  - Drug delivery system malfunction [Unknown]
  - Cough [Unknown]
  - Intentional device misuse [Unknown]
  - Choking [Unknown]
  - Product dose omission [Unknown]
  - Suspected COVID-19 [Unknown]
  - Pyrexia [Unknown]
  - Fatigue [Unknown]
  - Dyspnoea [Unknown]
  - Asthma [Unknown]
  - Wrong technique in device usage process [Unknown]
  - Device failure [Unknown]
  - Coronavirus test negative [Unknown]

NARRATIVE: CASE EVENT DATE: 202003
